FAERS Safety Report 17132498 (Version 1)
Quarter: 2019Q4

REPORT INFORMATION
  Report Type: Report from Study
  Country: None (occurrence: AR)
  Receive Date: 20191210
  Receipt Date: 20191210
  Transmission Date: 20200122
  Serious: Yes (Hospitalization, Other)
  Sender: FDA-Public Use
  Company Number: AR-ABBVIE-19K-007-3186079-00

PATIENT
  Sex: Female

DRUGS (2)
  1. CORTICOSTEROID NOS [Suspect]
     Active Substance: CORTICOSTEROID NOS
     Indication: PRODUCT USED FOR UNKNOWN INDICATION
     Route: 065
  2. HUMIRA [Suspect]
     Active Substance: ADALIMUMAB
     Indication: RHEUMATOID ARTHRITIS
     Route: 058
     Dates: start: 20150728

REACTIONS (6)
  - Hepatic steatosis [Recovered/Resolved]
  - Abdominal distension [Recovered/Resolved]
  - Myocardial infarction [Recovered/Resolved]
  - Hepatic failure [Recovered/Resolved]
  - Pyelonephritis [Recovering/Resolving]
  - Bone marrow failure [Unknown]

NARRATIVE: CASE EVENT DATE: 2017
